FAERS Safety Report 7170164-8 (Version None)
Quarter: 2010Q4

REPORT INFORMATION
  Report Type: 
  Country: None (occurrence: None)
  Receive Date: 20101123
  Receipt Date: 20101004
  Transmission Date: 20110411
  Serious: No
  Sender: FDA-Public Use
  Company Number: 019881

PATIENT
  Sex: Female
  Weight: 78 kg

DRUGS (8)
  1. CIMZIA [Suspect]
     Indication: CROHN'S DISEASE
     Dosage: (400 MG 1X/MONTH SUBCUTANEOUS)
     Route: 058
     Dates: start: 20100419
  2. SULFAZINE [Concomitant]
  3. POTASSIUM [Concomitant]
  4. FERROUS SULFATE [Concomitant]
  5. VITAMIN C /00008001/ [Concomitant]
  6. MAGNESIUM [Concomitant]
  7. SIMVASTATIN [Concomitant]
  8. DIOVAN [Concomitant]

REACTIONS (1)
  - PNEUMONIA [None]
